FAERS Safety Report 7598389-8 (Version None)
Quarter: 2011Q3

REPORT INFORMATION
  Report Type: 
  Country: None (occurrence: None)
  Receive Date: 20110708
  Receipt Date: 20110624
  Transmission Date: 20111222
  Serious: Yes (Disabling)
  Sender: FDA-Public Use
  Company Number: GB-WATSON-2011-10228

PATIENT
  Age: 56 Year
  Sex: Female

DRUGS (6)
  1. RISPERIDONE [Concomitant]
     Indication: PSYCHOTIC DISORDER
     Route: 048
  2. VALPROATE SODIUM [Concomitant]
     Indication: BIPOLAR DISORDER
     Route: 048
  3. PRIADEL                            /00033702/ [Concomitant]
     Indication: BIPOLAR DISORDER
     Dosage: 5 ML, BID
     Route: 048
  4. LEVOTHYROXINE SODIUM [Concomitant]
     Indication: PRODUCT USED FOR UNKNOWN INDICATION
     Dosage: 50 UG, UNK
     Route: 048
  5. PROCYCLIDINE HYDROCHLORIDE 2MG TAB [Concomitant]
     Indication: PRODUCT USED FOR UNKNOWN INDICATION
     Route: 048
  6. SERTRALINE HYDROCHLORIDE [Suspect]
     Indication: DEPRESSED MOOD
     Dosage: 50 MG, UNK
     Route: 048
     Dates: start: 20110528, end: 20110531

REACTIONS (4)
  - MOBILITY DECREASED [None]
  - HYPOTONIA [None]
  - DYSPHAGIA [None]
  - SEDATION [None]
